FAERS Safety Report 10334894 (Version 1)
Quarter: 2014Q3

REPORT INFORMATION
  Report Type: Spontaneous
  Country: US (occurrence: US)
  Receive Date: 20140723
  Receipt Date: 20140723
  Transmission Date: 20150326
  Serious: Yes (Other)
  Sender: FDA-Public Use
  Company Number: US-SA-2014SA094401

PATIENT
  Age: 66 Year
  Sex: Male

DRUGS (5)
  1. SOLOSTAR [Suspect]
     Active Substance: DEVICE
  2. SOLOSTAR [Suspect]
     Active Substance: DEVICE
     Dates: start: 2012
  3. LANTUS SOLOSTAR [Suspect]
     Active Substance: INSULIN GLARGINE
     Indication: PRODUCT USED FOR UNKNOWN INDICATION
     Dosage: DOSE:40 UNIT(S)
     Route: 058
     Dates: start: 2012
  4. LANTUS SOLOSTAR [Suspect]
     Active Substance: INSULIN GLARGINE
     Indication: PRODUCT USED FOR UNKNOWN INDICATION
     Dosage: DOSE:35 UNIT(S)
     Route: 058
  5. ALL OTHER THERAPEUTIC PRODUCTS [Concomitant]
     Active Substance: UNSPECIFIED INGREDIENT

REACTIONS (3)
  - Glomerular filtration rate decreased [Unknown]
  - Blood glucose increased [Unknown]
  - Injection site discolouration [Unknown]
